FAERS Safety Report 5274911-1 (Version None)
Quarter: 2007Q1

REPORT INFORMATION
  Report Type: 
  Country: None (occurrence: None)
  Receive Date: 20061208
  Receipt Date: 20060508
  Transmission Date: 20070707
  Serious: Yes (Life-Threatening, Hospitalization)
  Sender: FDA-Public Use
  Company Number: 2006UW06281

PATIENT
  Age: 58 Year
  Sex: Female

DRUGS (7)
  1. CRESTOR [Suspect]
     Dosage: 40 MG QD PO
     Route: 048
     Dates: start: 20031113, end: 20060130
  2. ZETIA [Concomitant]
  3. PLAVIX [Concomitant]
  4. LOPRESSOR [Concomitant]
  5. ASPIRIN [Concomitant]
  6. WELLBUTRIN SR [Concomitant]
  7. CELEBREX [Concomitant]

REACTIONS (2)
  - RENAL FAILURE ACUTE [None]
  - RHABDOMYOLYSIS [None]
